FAERS Safety Report 10687266 (Version 1)
Quarter: 2014Q4

REPORT INFORMATION
  Report Type: Spontaneous
  Country: US (occurrence: None)
  Receive Date: 20141230
  Receipt Date: 20141230
  Transmission Date: 20150529
  Serious: Yes (Hospitalization)
  Sender: FDA-Public Use
  Company Number: None

PATIENT
  Age: 71 Year
  Sex: Female
  Weight: 80.5 kg

DRUGS (1)
  1. METOPROLOL [Suspect]
     Active Substance: METOPROLOL
     Indication: HYPOTENSION
     Dosage: 1/2MG BID PO
     Route: 048
     Dates: start: 20140902, end: 20140906

REACTIONS (3)
  - Hypovolaemia [None]
  - Hypotension [None]
  - Diarrhoea [None]

NARRATIVE: CASE EVENT DATE: 20140906
